FAERS Safety Report 7111943-2 (Version None)
Quarter: 2010Q4

REPORT INFORMATION
  Report Type: 
  Country: None (occurrence: None)
  Receive Date: 20101119
  Receipt Date: 20101111
  Transmission Date: 20110411
  Serious: Yes (Other)
  Sender: FDA-Public Use
  Company Number: US-SHIRE-SPV1-2010-01943

PATIENT
  Sex: Male
  Weight: 106.58 kg

DRUGS (9)
  1. 489 (LISDEXAMFETAMINE DIMESYLATE) [Suspect]
     Indication: MAJOR DEPRESSION
     Dosage: 20 MG, 1X/DAY:QD
     Route: 048
     Dates: start: 20101104, end: 20101104
  2. CELEXA [Concomitant]
     Indication: DEPRESSION
     Dosage: 40 MG, 1X/DAY:QD
     Route: 048
     Dates: start: 20100818
  3. ASPIRIN [Concomitant]
     Indication: HEADACHE
     Dosage: 650 MG, AS REQ'D
     Route: 048
     Dates: start: 19820101
  4. B-COMPLEX                          /00003501/ [Concomitant]
     Indication: SUPPLEMENTATION THERAPY
     Dosage: 1 TABLET, 1X/DAY:QD
     Route: 048
     Dates: start: 20050101
  5. VITAMIN B-12 [Concomitant]
     Indication: SUPPLEMENTATION THERAPY
     Dosage: 1 TABLET, 1X/DAY:QD
     Route: 048
     Dates: start: 20050101
  6. VITAMIN C                          /00008001/ [Concomitant]
     Indication: SUPPLEMENTATION THERAPY
     Dosage: 1 UNK, 1X/DAY:QD
     Route: 048
     Dates: start: 20050101
  7. VITAMIN A [Concomitant]
     Indication: SUPPLEMENTATION THERAPY
     Dosage: 1 TABLET, 1X/DAY:QD
     Route: 048
     Dates: start: 20100801
  8. VITAMIN E                          /00110501/ [Concomitant]
     Indication: SUPPLEMENTATION THERAPY
     Dosage: 1 TABLET, 1X/DAY:QD
     Route: 048
     Dates: start: 20050101
  9. FLAXSEED OIL [Concomitant]
     Indication: SUPPLEMENTATION THERAPY
     Dosage: 1 TABLET, 1X/DAY:QD
     Route: 048
     Dates: start: 20090101

REACTIONS (1)
  - LOSS OF CONSCIOUSNESS [None]
